FAERS Safety Report 19273711 (Version 1)
Quarter: 2021Q2

REPORT INFORMATION
  Report Type: Spontaneous
  Country: US (occurrence: US)
  Receive Date: 20210519
  Receipt Date: 20210519
  Transmission Date: 20210717
  Serious: Yes (Death, Hospitalization)
  Sender: FDA-Public Use
  Company Number: None

PATIENT
  Age: 64 Year
  Sex: Male
  Weight: 87.99 kg

DRUGS (3)
  1. ABIRATERONE ACETATE. [Suspect]
     Active Substance: ABIRATERONE ACETATE
     Dates: end: 20200826
  2. CABAZITAXEL [Suspect]
     Active Substance: CABAZITAXEL
     Dates: end: 20200812
  3. PREDNISONE. [Suspect]
     Active Substance: PREDNISONE
     Dates: end: 20200826

REACTIONS (6)
  - Tachypnoea [None]
  - Lethargy [None]
  - Urethral abscess [None]
  - Craniectomy [None]
  - Pleural effusion [None]
  - Subdural haematoma [None]

NARRATIVE: CASE EVENT DATE: 20200830
